FAERS Safety Report 7810060-3 (Version None)
Quarter: 2011Q4

REPORT INFORMATION
  Report Type: 
  Country: None (occurrence: None)
  Receive Date: 20111012
  Receipt Date: 20111007
  Transmission Date: 20120403
  Serious: Yes (Hospitalization)
  Sender: FDA-Public Use
  Company Number: US-CEPHALON-2011005134

PATIENT
  Sex: Female
  Weight: 69 kg

DRUGS (2)
  1. BENDAMUSTINE HCL [Suspect]
     Indication: DIFFUSE LARGE B-CELL LYMPHOMA
     Route: 042
     Dates: start: 20110913
  2. RITUXAN [Suspect]
     Dates: start: 20110913

REACTIONS (1)
  - CARDIAC FAILURE [None]
